FAERS Safety Report 25736793 (Version 3)
Quarter: 2025Q4

REPORT INFORMATION
  Report Type: Spontaneous
  Country: JP (occurrence: JP)
  Receive Date: 20250828
  Receipt Date: 20251106
  Transmission Date: 20260117
  Serious: No
  Sender: ELI LILLY AND COMPANY
  Company Number: JP-ELI_LILLY_AND_COMPANY-JP202508022711

PATIENT
  Age: 71 Year
  Sex: Female

DRUGS (1)
  1. KISUNLA [Suspect]
     Active Substance: DONANEMAB-AZBT
     Indication: Dementia Alzheimer^s type
     Dosage: 700 MG
     Route: 041
     Dates: start: 20250728

REACTIONS (2)
  - Heat illness [Unknown]
  - Dehydration [Unknown]

NARRATIVE: CASE EVENT DATE: 20250813
